FAERS Safety Report 15620421 (Version 2)
Quarter: 2018Q4

REPORT INFORMATION
  Report Type: Spontaneous
  Country: US (occurrence: US)
  Receive Date: 20181115
  Receipt Date: 20181213
  Transmission Date: 20190205
  Serious: No
  Sender: FDA-Public Use
  Company Number: US-BIOGEN-2018BI00657743

PATIENT
  Sex: Female

DRUGS (1)
  1. PLEGRIDY [Suspect]
     Active Substance: PEGINTERFERON BETA-1A
     Indication: MULTIPLE SCLEROSIS
     Route: 058
     Dates: start: 20180216, end: 20180831

REACTIONS (6)
  - Pain [Unknown]
  - Nausea [Unknown]
  - Heart rate increased [Unknown]
  - Malaise [Unknown]
  - Thyroid disorder [Unknown]
  - Dyspepsia [Unknown]
